FAERS Safety Report 19610498 (Version 1)
Quarter: 2021Q3

REPORT INFORMATION
  Report Type: Spontaneous
  Country: DE (occurrence: DE)
  Receive Date: 20210726
  Receipt Date: 20210726
  Transmission Date: 20211014
  Serious: Yes (Other)
  Sender: FDA-Public Use
  Company Number: DE-ROCHE-2871237

PATIENT
  Age: 28 Year
  Sex: Male

DRUGS (1)
  1. RITUXAN [Suspect]
     Active Substance: RITUXIMAB
     Indication: ANTI-MYELIN-ASSOCIATED GLYCOPROTEIN ASSOCIATED POLYNEUROPATHY
     Dosage: ONGOING
     Route: 065
     Dates: start: 201904

REACTIONS (4)
  - Herpes zoster [Recovered/Resolved]
  - Fatigue [Not Recovered/Not Resolved]
  - Facial paralysis [Not Recovered/Not Resolved]
  - Blister [Recovered/Resolved]

NARRATIVE: CASE EVENT DATE: 201904
